FAERS Safety Report 21727710 (Version 1)
Quarter: 2022Q4

REPORT INFORMATION
  Report Type: Spontaneous
  Country: US (occurrence: US)
  Receive Date: 20221214
  Receipt Date: 20221214
  Transmission Date: 20230113
  Serious: No
  Sender: FDA-Public Use
  Company Number: US-BEH-2022152857

PATIENT
  Sex: Male
  Weight: 18.594 kg

DRUGS (1)
  1. HIZENTRA [Suspect]
     Active Substance: HUMAN IMMUNOGLOBULIN G
     Indication: Congenital hypogammaglobulinaemia
     Dosage: 3 GRAM, QW
     Route: 058
     Dates: start: 20220429

REACTIONS (4)
  - Weight increased [Unknown]
  - Gastroenteritis [Unknown]
  - Decreased appetite [Unknown]
  - Ill-defined disorder [Recovering/Resolving]
